FAERS Safety Report 8042062-9 (Version None)
Quarter: 2012Q1

REPORT INFORMATION
  Report Type: 
  Country: None (occurrence: None)
  Receive Date: 20120112
  Receipt Date: 20111228
  Transmission Date: 20120608
  Serious: Yes (Death)
  Sender: FDA-Public Use
  Company Number: US-UCBSA-049145

PATIENT
  Age: 34 Year
  Sex: Female

DRUGS (6)
  1. LIDOCAINE [Suspect]
  2. OXYCODONE HCL [Suspect]
  3. ALPRAZOLAM [Suspect]
     Route: 048
  4. FENTANYL [Suspect]
     Route: 062
  5. CARISOPRODOL [Suspect]
  6. BUPRENORPHINE HCL AND NALOXONE HCL [Suspect]
     Route: 060

REACTIONS (1)
  - TOXICITY TO VARIOUS AGENTS [None]
